FAERS Safety Report 25475729 (Version 1)
Quarter: 2025Q2

REPORT INFORMATION
  Report Type: Report from Study
  Country: US (occurrence: US)
  Receive Date: 20250624
  Receipt Date: 20250624
  Transmission Date: 20250716
  Serious: Yes (Hospitalization, Other)
  Sender: ABBVIE
  Company Number: US-ABBVIE-6338693

PATIENT
  Sex: Female

DRUGS (1)
  1. IMBRUVICA [Suspect]
     Active Substance: IBRUTINIB
     Indication: Chronic lymphocytic leukaemia
     Route: 048
     Dates: start: 20180320, end: 202506

REACTIONS (4)
  - Neoplasm [Unknown]
  - Tumour lysis syndrome [Unknown]
  - Pancreatitis [Unknown]
  - Therapeutic product effect decreased [Unknown]
